FAERS Safety Report 8997861 (Version 2)
Quarter: 2013Q1

REPORT INFORMATION
  Report Type: Report from Study
  Country: DE (occurrence: DE)
  Receive Date: 20130104
  Receipt Date: 20130108
  Transmission Date: 20140127
  Serious: Yes (Hospitalization)
  Sender: FDA-Public Use
  Company Number: DE-ROCHE-1173212

PATIENT
  Age: 52 Year
  Sex: Female
  Weight: 57 kg

DRUGS (3)
  1. BEVACIZUMAB [Suspect]
     Indication: OVARIAN CANCER
     Dosage: LAST DOSE OF BEVACIZUMAB PRIOR TO SAE: 11/DEC/2012
     Route: 042
     Dates: start: 20120919
  2. CARBOPLATIN [Suspect]
     Indication: OVARIAN CANCER
     Dosage: LAST DOSE OF CARBOPLATIN PRIOR TO SAE: 11/DEC/2012
     Route: 042
     Dates: start: 20120829
  3. PACLITAXEL [Suspect]
     Indication: OVARIAN CANCER
     Dosage: LAST DOSE OF PACLITAXEL PRIOR TO SAE: 11/DEC/2012
     Route: 042
     Dates: start: 20120829

REACTIONS (1)
  - Gastrointestinal motility disorder [Recovered/Resolved]
